FAERS Safety Report 7597697-4 (Version None)
Quarter: 2011Q3

REPORT INFORMATION
  Report Type: 
  Country: None (occurrence: None)
  Receive Date: 20110708
  Receipt Date: 20110615
  Transmission Date: 20111222
  Serious: Yes (Hospitalization)
  Sender: FDA-Public Use
  Company Number: US-GLAXOSMITHKLINE-A0882797A

PATIENT
  Sex: Female
  Weight: 90 kg

DRUGS (2)
  1. AVANDIA [Suspect]
     Indication: DIABETES MELLITUS
  2. AVANDAMET [Suspect]
     Indication: DIABETES MELLITUS

REACTIONS (14)
  - CORONARY ARTERY DISEASE [None]
  - FLUID RETENTION [None]
  - RIB FRACTURE [None]
  - BUNDLE BRANCH BLOCK RIGHT [None]
  - MYOCARDIAL INFARCTION [None]
  - PULMONARY EMBOLISM [None]
  - CARDIAC ARREST [None]
  - UPPER LIMB FRACTURE [None]
  - INJURY [None]
  - PELVIC FRACTURE [None]
  - FLUID OVERLOAD [None]
  - PAIN [None]
  - CARDIAC DISORDER [None]
  - CONTUSION [None]
